FAERS Safety Report 8080782-0 (Version None)
Quarter: 2012Q1

REPORT INFORMATION
  Report Type: 
  Country: None (occurrence: None)
  Receive Date: 20120130
  Receipt Date: 20120130
  Transmission Date: 20120608
  Serious: Yes (Hospitalization, Other)
  Sender: FDA-Public Use
  Company Number: BR-JNJFOC-20111102291

PATIENT
  Age: 40 Year
  Sex: Male
  Weight: 92 kg

DRUGS (17)
  1. ABILIFY [Concomitant]
     Indication: PSYCHOTIC DISORDER
     Route: 065
     Dates: start: 20050101
  2. HALDOL [Suspect]
     Indication: BIPOLAR DISORDER
     Route: 048
     Dates: start: 20050101
  3. SLOW-K [Concomitant]
     Indication: ELECTROLYTE SUBSTITUTION THERAPY
     Route: 065
  4. INVEGA [Suspect]
     Indication: BIPOLAR DISORDER
     Route: 048
  5. RETINOL [Concomitant]
     Indication: PRODUCT USED FOR UNKNOWN INDICATION
     Route: 065
  6. SEROQUEL [Concomitant]
     Indication: PSYCHOTIC DISORDER
     Route: 065
     Dates: start: 20050101
  7. INVEGA [Suspect]
     Route: 048
  8. LITHIUM CARBONATE [Concomitant]
     Indication: PSYCHOTIC DISORDER
     Route: 065
     Dates: start: 20050101
  9. INVEGA [Suspect]
     Route: 048
     Dates: start: 20050101
  10. INVEGA [Suspect]
     Route: 048
  11. TRILEPTAL [Concomitant]
     Indication: PSYCHOTIC DISORDER
     Route: 065
     Dates: start: 20050101
  12. WELLBUTRIN XL [Concomitant]
     Indication: PSYCHOTIC DISORDER
     Route: 065
     Dates: start: 20050101
  13. AMPLICTIL [Concomitant]
     Indication: SEDATION
     Route: 065
     Dates: start: 20050101
  14. CLONAZEPAM [Concomitant]
     Indication: SEDATION
     Route: 065
     Dates: start: 20050101
  15. DIAZEPAM [Concomitant]
     Indication: SEDATION
     Route: 065
     Dates: start: 20050101
  16. CIALIS [Concomitant]
     Indication: PROPHYLAXIS
     Route: 065
     Dates: start: 20050101
  17. DIAMOX SR [Concomitant]
     Indication: RETINAL OEDEMA
     Route: 065

REACTIONS (10)
  - ASTHENIA [None]
  - SOMNOLENCE [None]
  - DRUG PRESCRIBING ERROR [None]
  - PRODUCT QUALITY ISSUE [None]
  - RASH [None]
  - FALL [None]
  - POST-TRAUMATIC STRESS DISORDER [None]
  - MEDICATION ERROR [None]
  - DIZZINESS [None]
  - BLOOD PRESSURE DECREASED [None]
